FAERS Safety Report 5159750-4 (Version None)
Quarter: 2006Q4

REPORT INFORMATION
  Report Type: 
  Country: None (occurrence: None)
  Receive Date: 20061129
  Receipt Date: 20051103
  Transmission Date: 20070319
  Serious: No
  Sender: FDA-Public Use
  Company Number: US-GLAXOSMITHKLINE-A0580785A

PATIENT
  Sex: Male

DRUGS (4)
  1. WELLBUTRIN SR [Suspect]
     Dosage: 150MG PER DAY
     Route: 048
     Dates: end: 20051025
  2. ASPIRIN [Concomitant]
  3. ANTI-CHOLESTEROL MEDICATION [Concomitant]
  4. SUPPLEMENT [Concomitant]

REACTIONS (3)
  - DEPRESSION [None]
  - FATIGUE [None]
  - IRRITABILITY [None]
